FAERS Safety Report 25269203 (Version 2)
Quarter: 2025Q2

REPORT INFORMATION
  Report Type: Spontaneous
  Country: US (occurrence: US)
  Receive Date: 20250505
  Receipt Date: 20250516
  Transmission Date: 20250717
  Serious: Yes (Life-Threatening, Hospitalization)
  Sender: TEVA
  Company Number: US-TEVA-VS-3327469

PATIENT
  Age: 64 Year
  Sex: Male

DRUGS (5)
  1. PREDNISONE [Suspect]
     Active Substance: PREDNISONE
     Indication: Immunosuppressant drug therapy
     Route: 065
  2. MYCOPHENOLIC ACID [Suspect]
     Active Substance: MYCOPHENOLIC ACID
     Indication: Immunosuppressant drug therapy
     Route: 065
  3. NITAZOXANIDE [Interacting]
     Active Substance: NITAZOXANIDE
     Indication: Cryptosporidiosis infection
     Route: 065
  4. TACROLIMUS [Interacting]
     Active Substance: TACROLIMUS
     Indication: Immunosuppressant drug therapy
     Route: 065
  5. AZITHROMYCIN [Interacting]
     Active Substance: AZITHROMYCIN
     Indication: Cryptosporidiosis infection
     Route: 065

REACTIONS (4)
  - Dyspnoea [Recovered/Resolved]
  - Pulmonary toxicity [Recovered/Resolved]
  - Cryptosporidiosis infection [Recovered/Resolved]
  - Drug interaction [Recovered/Resolved]
